FAERS Safety Report 4553252-1 (Version None)
Quarter: 2005Q1

REPORT INFORMATION
  Report Type: 
  Country: None (occurrence: None)
  Receive Date: 20050112
  Receipt Date: 20050112
  Transmission Date: 20050727
  Serious: Yes (Life-Threatening, Hospitalization)
  Sender: FDA-Public Use
  Company Number: None

PATIENT
  Age: 75 Year
  Sex: Female
  Weight: 72 kg

DRUGS (2)
  1. AMPICILLIN [Suspect]
     Indication: ABDOMINAL INFECTION
     Dosage: 500MG IV Q 6 H
     Route: 042
     Dates: start: 20041004, end: 20041002
  2. CLINDAMYCIN HCL [Suspect]
     Indication: LIVER ABSCESS
     Dosage: 600 MG IV Q 8 H
     Route: 042
     Dates: start: 20041004, end: 20041006

REACTIONS (2)
  - DRUG HYPERSENSITIVITY [None]
  - THERMAL BURN [None]
